FAERS Safety Report 14072210 (Version 7)
Quarter: 2020Q4

REPORT INFORMATION
  Report Type: Spontaneous
  Country: US (occurrence: US)
  Receive Date: 20171010
  Receipt Date: 20201113
  Transmission Date: 20210113
  Serious: Yes (Hospitalization)
  Sender: FDA-Public Use
  Company Number: US-SA-2017SA172354

PATIENT

DRUGS (12)
  1. DUPIXENT [Suspect]
     Active Substance: DUPILUMAB
     Indication: DERMATITIS ATOPIC
     Dosage: 300 MG, QOW
     Route: 058
     Dates: start: 201704, end: 2017
  2. VITAMIN D3 [Concomitant]
     Active Substance: CHOLECALCIFEROL
  3. NEXIUM [Concomitant]
     Active Substance: ESOMEPRAZOLE MAGNESIUM
  4. JANUVIA [Concomitant]
     Active Substance: SITAGLIPTIN PHOSPHATE
     Dosage: UNK
  5. DUPIXENT [Suspect]
     Active Substance: DUPILUMAB
     Dosage: 300 MG (FREQUNCY: GETTING INJECTION ON DAY 10)
     Route: 058
     Dates: start: 201707, end: 201707
  6. DUPIXENT [Suspect]
     Active Substance: DUPILUMAB
     Dosage: 300 MG, QOW
     Route: 058
     Dates: start: 20170801
  7. HYDROCHLOROTHIAZIDE. [Concomitant]
     Active Substance: HYDROCHLOROTHIAZIDE
  8. JANUVIA [Concomitant]
     Active Substance: SITAGLIPTIN PHOSPHATE
  9. DUPIXENT [Suspect]
     Active Substance: DUPILUMAB
     Dosage: 300 MG
     Route: 058
     Dates: start: 201707, end: 201707
  10. LISINOPRIL. [Concomitant]
     Active Substance: LISINOPRIL
  11. ATIVAN [Concomitant]
     Active Substance: LORAZEPAM
  12. XANAX [Concomitant]
     Active Substance: ALPRAZOLAM

REACTIONS (10)
  - Dermatitis atopic [Unknown]
  - Paraesthesia [Unknown]
  - Skin depigmentation [Recovered/Resolved]
  - Nasopharyngitis [Unknown]
  - Dry eye [Unknown]
  - Off label use [Unknown]
  - Urinary tract infection [Unknown]
  - Skin haemorrhage [Unknown]
  - Blister [Unknown]
  - Drug ineffective [Unknown]

NARRATIVE: CASE EVENT DATE: 2017
